FAERS Safety Report 8129685-3 (Version None)
Quarter: 2012Q1

REPORT INFORMATION
  Report Type: 
  Country: None (occurrence: None)
  Receive Date: 20120210
  Receipt Date: 20120208
  Transmission Date: 20120608
  Serious: Yes (Hospitalization)
  Sender: FDA-Public Use
  Company Number: US-ELI_LILLY_AND_COMPANY-US201202002705

PATIENT
  Sex: Male

DRUGS (4)
  1. HUMALOG [Suspect]
     Indication: DIABETES MELLITUS
     Dosage: 3 U, UNKNOWN
  2. HUMALOG [Suspect]
     Dosage: 2 U, UNKNOWN
  3. HUMALOG [Suspect]
     Dosage: 3 U, UNKNOWN
  4. LANTUS [Concomitant]
     Dosage: UNK

REACTIONS (2)
  - HOSPITALISATION [None]
  - MEDICATION ERROR [None]
